FAERS Safety Report 8018155-9 (Version None)
Quarter: 2012Q1

REPORT INFORMATION
  Report Type: 
  Country: None (occurrence: None)
  Receive Date: 20120103
  Receipt Date: 20111230
  Transmission Date: 20120608
  Serious: Yes (Other)
  Sender: FDA-Public Use
  Company Number: US-JNJFOC-20120100123

PATIENT
  Sex: Female
  Weight: 98.88 kg

DRUGS (4)
  1. VERAMYST NOS [Suspect]
     Indication: URINARY TRACT INFECTION
     Route: 065
  2. VERAMYST NOS [Suspect]
     Indication: EAR INFECTION
     Route: 065
  3. LEVAQUIN [Suspect]
     Indication: URINARY TRACT INFECTION
     Route: 048
     Dates: start: 20111206, end: 20111218
  4. LEVAQUIN [Suspect]
     Indication: EAR INFECTION
     Route: 048
     Dates: start: 20111206, end: 20111218

REACTIONS (7)
  - CONDITION AGGRAVATED [None]
  - BURNING SENSATION [None]
  - ACTIVITIES OF DAILY LIVING IMPAIRED [None]
  - HEAD DISCOMFORT [None]
  - MUSCLE TWITCHING [None]
  - DIZZINESS [None]
  - PAIN IN EXTREMITY [None]
